FAERS Safety Report 6463916-0 (Version None)
Quarter: 2009Q4

REPORT INFORMATION
  Report Type: 
  Country: None (occurrence: None)
  Receive Date: 20091201
  Receipt Date: 20091117
  Transmission Date: 20100525
  Serious: Yes (Hospitalization)
  Sender: FDA-Public Use
  Company Number: US-JNJFOC-20091105779

PATIENT
  Sex: Female
  Weight: 56.7 kg

DRUGS (5)
  1. DURAGESIC-100 [Suspect]
     Indication: BACK PAIN
     Dosage: 1-2 PATCHES EVERY 72 HOURS
     Route: 062
  2. DURAGESIC-100 [Suspect]
     Dosage: 1-2 PATCHES EVERY 72 HOURS
     Route: 062
  3. FENTORA [Concomitant]
     Indication: PAIN
     Route: 048
  4. LEXAPRO [Concomitant]
     Indication: DEPRESSION
     Route: 048
  5. SOMA [Concomitant]
     Indication: PAIN
     Route: 048

REACTIONS (5)
  - CEREBRAL HAEMORRHAGE [None]
  - CEREBROVASCULAR ACCIDENT [None]
  - DRUG DISPENSING ERROR [None]
  - HYPERTENSION [None]
  - MALAISE [None]
